FAERS Safety Report 5533405-6 (Version None)
Quarter: 2007Q4

REPORT INFORMATION
  Report Type: 
  Country: None (occurrence: None)
  Receive Date: 20071204
  Receipt Date: 20071121
  Transmission Date: 20080405
  Serious: Yes (Life-Threatening, Hospitalization, Other)
  Sender: FDA-Public Use
  Company Number: GB-RANBAXY-2007RR-11636

PATIENT

DRUGS (9)
  1. AMOXIL [Suspect]
     Dosage: 250 MG, TID
     Route: 048
     Dates: start: 20071101, end: 20071105
  2. WARFARIN SODIUM [Suspect]
     Dosage: 5 MG, QD
     Route: 048
     Dates: start: 20020101, end: 20071114
  3. ATENOLOL TABLETS BP 100MG [Concomitant]
     Dosage: 25 MG, UNK
     Route: 048
  4. CYANOCOBALAMIN [Concomitant]
     Dosage: 50 UG, BID
     Route: 048
  5. DIGOXIN [Concomitant]
     Dosage: 125 UG, UNK
     Route: 048
  6. FINASTERIDE 5MG FILM-COATED TABLETS [Concomitant]
     Dosage: 5 MG, QD
     Route: 048
  7. RAMIPRIL [Concomitant]
     Dosage: 5 MG, QD
     Route: 048
  8. THIAMINE [Concomitant]
     Dosage: 100 MG, UNK
     Route: 048
  9. LEVOTHYROXINE SODIUM [Concomitant]
     Dosage: 50 UG, UNK
     Route: 048

REACTIONS (4)
  - CONFUSIONAL STATE [None]
  - DRUG INTERACTION [None]
  - INCORRECT DOSE ADMINISTERED [None]
  - INTERNATIONAL NORMALISED RATIO INCREASED [None]
